FAERS Safety Report 6879264-0 (Version None)
Quarter: 2010Q3

REPORT INFORMATION
  Report Type: 
  Country: None (occurrence: None)
  Receive Date: 20100728
  Receipt Date: 20100718
  Transmission Date: 20110219
  Serious: Yes (Death, Hospitalization)
  Sender: FDA-Public Use
  Company Number: AT-ELI_LILLY_AND_COMPANY-AT201005005593

PATIENT
  Sex: Male
  Weight: 69 kg

DRUGS (8)
  1. PEMETREXED [Suspect]
     Indication: NON-SMALL CELL LUNG CANCER
     Dosage: 625 MG, ONCE EVERY 3 WEEKS
     Route: 042
     Dates: start: 20091130
  2. OTHER PHARMA COMPANY INV DRUG [Suspect]
     Indication: NON-SMALL CELL LUNG CANCER
     Dosage: 800 MG, DAYS 1+8 EVERY 3 WEEKS
     Route: 042
     Dates: start: 20091130, end: 20100413
  3. CISPLATIN [Suspect]
     Indication: NON-SMALL CELL LUNG CANCER
     Dosage: 130 MG, EVERY 3 WEEEKS
     Route: 042
     Dates: start: 20091130
  4. FOLSAN [Concomitant]
     Dosage: 0.4 MG, DAILY (1/D)
  5. DICLOFENAC [Concomitant]
     Dosage: 50 MG, DAILY (1/D)
  6. LANSOPRAZOLE [Concomitant]
     Dosage: 1 D/F, DAILY (1/D)
  7. LOVENOX [Concomitant]
     Indication: PULMONARY EMBOLISM
     Dosage: 80 UNK, UNKNOWN
     Route: 065
     Dates: start: 20100319, end: 20100422
  8. LOVENOX [Concomitant]
     Dosage: 60 D/F, UNKNOWN
     Route: 065
     Dates: start: 20100422, end: 20100510

REACTIONS (1)
  - CEREBRAL ISCHAEMIA [None]
